FAERS Safety Report 14993663 (Version 1)
Quarter: 2018Q2

REPORT INFORMATION
  Report Type: Spontaneous
  Country: GB (occurrence: GB)
  Receive Date: 20180611
  Receipt Date: 20180611
  Transmission Date: 20180711
  Serious: Yes (Other)
  Sender: FDA-Public Use
  Company Number: GB-TEVA-2018-GB-905844

PATIENT
  Age: 45 Year
  Sex: Male
  Weight: 115 kg

DRUGS (12)
  1. COCODAMOL [Concomitant]
     Active Substance: ACETAMINOPHEN\CODEINE PHOSPHATE
     Dosage: 1-2 TO BE TAKEN FOUR TIMES DAILY
     Route: 065
     Dates: start: 20180405
  2. ACETYLSALICYLIC ACID [Concomitant]
     Active Substance: ASPIRIN
     Dosage: 1 DOSAGE FORMS DAILY;
     Route: 065
     Dates: start: 20171221
  3. GLYCERYL TRINITRATE [Concomitant]
     Active Substance: NITROGLYCERIN
     Dosage: PUFF
     Route: 065
     Dates: start: 20171221, end: 20180321
  4. ATORVASTATIN [Concomitant]
     Active Substance: ATORVASTATIN
     Dosage: 1 DOSAGE FORMS DAILY;
     Route: 065
     Dates: start: 20171221
  5. SALBUTAMOL [Concomitant]
     Active Substance: ALBUTEROL
     Route: 055
     Dates: start: 20171221
  6. FLUTICASONE FUROATE [Concomitant]
     Active Substance: FLUTICASONE FUROATE
     Dosage: 1 DOSAGE FORMS DAILY; USE
     Route: 065
     Dates: start: 20180405
  7. PHENOXYMETHYLPENICILLIN [Suspect]
     Active Substance: PENICILLIN V
     Route: 048
     Dates: start: 20180410
  8. DILTIAZEM. [Concomitant]
     Active Substance: DILTIAZEM
     Dosage: 3 DOSAGE FORMS DAILY;
     Route: 065
     Dates: start: 20171221, end: 20180321
  9. DOXYCYCLINE. [Concomitant]
     Active Substance: DOXYCYCLINE
     Dosage: 2 ON FIRST DAY ONCE A DAY,  THEN 1 ONCE A DAY
     Route: 065
     Dates: start: 20180329, end: 20180402
  10. MIRTAZAPINE. [Concomitant]
     Active Substance: MIRTAZAPINE
     Dosage: 1 DOSAGE FORMS DAILY; AT NIGHT
     Route: 065
     Dates: start: 20171221, end: 20180321
  11. FLUTIFORM [Concomitant]
     Active Substance: FLUTICASONE PROPIONATE\FORMOTEROL FUMARATE
     Dosage: 4 DOSAGE FORMS DAILY; PUFFS
     Route: 065
     Dates: start: 20180405
  12. FLUTICASONE. [Concomitant]
     Active Substance: FLUTICASONE
     Dosage: 4 DOSAGE FORMS DAILY;
     Route: 055
     Dates: start: 20171221, end: 20180321

REACTIONS (3)
  - Hypersensitivity [Unknown]
  - Pharyngeal oedema [Recovered/Resolved]
  - Skin swelling [Recovered/Resolved]

NARRATIVE: CASE EVENT DATE: 20180410
